FAERS Safety Report 15767217 (Version 3)
Quarter: 2019Q2

REPORT INFORMATION
  Report Type: Spontaneous
  Country: US (occurrence: US)
  Receive Date: 20181227
  Receipt Date: 20190402
  Transmission Date: 20190711
  Serious: Yes (Other)
  Sender: FDA-Public Use
  Company Number: US-BRISTOL-MYERS SQUIBB COMPANY-BMS-2018-122093

PATIENT
  Sex: Female
  Weight: 63.49 kg

DRUGS (1)
  1. ORENCIA [Suspect]
     Active Substance: ABATACEPT
     Indication: RHEUMATOID ARTHRITIS
     Dosage: 125 MG, QWK
     Route: 058
     Dates: start: 201808

REACTIONS (5)
  - Abdominal pain [Unknown]
  - Abdominal pain upper [Unknown]
  - Thrombosis [Unknown]
  - Burning sensation [Unknown]
  - Nausea [Unknown]
